FAERS Safety Report 23303254 (Version 1)
Quarter: 2023Q4

REPORT INFORMATION
  Report Type: Spontaneous
  Country: US (occurrence: US)
  Receive Date: 20231215
  Receipt Date: 20231215
  Transmission Date: 20240109
  Serious: No
  Sender: FDA-Public Use
  Company Number: US-ABBVIE-5541216

PATIENT
  Sex: Female

DRUGS (1)
  1. QULIPTA [Suspect]
     Active Substance: ATOGEPANT
     Indication: Product used for unknown indication
     Route: 048

REACTIONS (7)
  - Dry mouth [Unknown]
  - Tongue discomfort [Unknown]
  - Taste disorder [Unknown]
  - Adverse drug reaction [Unknown]
  - Vaginal discharge [Unknown]
  - Unevaluable event [Unknown]
  - Amenorrhoea [Unknown]
